FAERS Safety Report 9959290 (Version 1)
Quarter: 2014Q1

REPORT INFORMATION
  Report Type: Spontaneous
  Country: FR (occurrence: None)
  Receive Date: 20140228
  Receipt Date: 20140228
  Transmission Date: 20141002
  Serious: Yes (Hospitalization)
  Sender: FDA-Public Use
  Company Number: 2014DEPFR00589

PATIENT
  Sex: Male

DRUGS (1)
  1. DEPOCYTE [Suspect]
     Indication: METASTASES TO MENINGES
     Route: 037

REACTIONS (2)
  - CSF glucose decreased [None]
  - Leukocytosis [None]
